FAERS Safety Report 9600366 (Version 2)
Quarter: 2015Q3

REPORT INFORMATION
  Report Type: Report from Study
  Country: US (occurrence: US)
  Receive Date: 20131004
  Receipt Date: 20150827
  Transmission Date: 20151125
  Serious: No
  Sender: FDA-Public Use
  Company Number: US-AMGEN-USASP2013034115

PATIENT
  Age: 61 Year
  Sex: Female
  Weight: 74.83 kg

DRUGS (12)
  1. FISH OIL [Concomitant]
     Active Substance: FISH OIL
     Dosage: UNK
  2. GLUCO + CHONDROITIN [Concomitant]
     Dosage: UNK
  3. ENBREL [Suspect]
     Active Substance: ETANERCEPT
     Indication: RHEUMATOID ARTHRITIS
     Dosage: 50 MG, QWK
     Route: 058
     Dates: start: 201111, end: 201410
  4. CALCIUM [Concomitant]
     Active Substance: CALCIUM
     Dosage: UNK 500
  5. ADRENAL [Concomitant]
     Active Substance: EPINEPHRINE
     Dosage: 200 MG, UNK
  6. CO Q 10                            /00517201/ [Concomitant]
     Dosage: UNK
  7. OMEGA-3                            /01866101/ [Concomitant]
     Active Substance: OMEGA-3 FATTY ACIDS
     Dosage: UNK
  8. MOBIC [Concomitant]
     Active Substance: MELOXICAM
     Dosage: 15 MG, UNK
  9. CLARITIN [Concomitant]
     Active Substance: LORATADINE
     Dosage: 10 MG, UNK
  10. VITAMIN D                          /00107901/ [Concomitant]
     Active Substance: ERGOCALCIFEROL
     Dosage: 2000 UNIT, UNK
  11. BORAGE OIL [Concomitant]
     Active Substance: BORAGE OIL
     Dosage: 1000 MG, UNK
  12. MSM [Concomitant]
     Active Substance: DIMETHYL SULFONE
     Dosage: UNK

REACTIONS (5)
  - Injection site urticaria [Recovered/Resolved]
  - Condition aggravated [Unknown]
  - Adverse drug reaction [Unknown]
  - Cartilage injury [Unknown]
  - Arthritis [Unknown]

NARRATIVE: CASE EVENT DATE: 20120501
